APPROVED DRUG PRODUCT: URSODIOL
Active Ingredient: URSODIOL
Strength: 300MG
Dosage Form/Route: CAPSULE;ORAL
Application: A214329 | Product #001 | TE Code: AB
Applicant: RK PHARMA INC
Approved: Jul 28, 2021 | RLD: No | RS: No | Type: RX